FAERS Safety Report 18573110 (Version 7)
Quarter: 2022Q3

REPORT INFORMATION
  Report Type: Other
  Country: DE (occurrence: None)
  Receive Date: 20201203
  Receipt Date: 20220713
  Transmission Date: 20221027
  Serious: Yes (Congenital Anomaly, Other)
  Sender: FDA-Public Use
  Company Number: DE-ROCHE-2724485

PATIENT
  Sex: Female
  Weight: 1.83 kg

DRUGS (5)
  1. OCRELIZUMAB [Suspect]
     Active Substance: OCRELIZUMAB
     Indication: Product used for unknown indication
     Dosage: MOTHER DOSE WAS 300 MG
     Route: 064
     Dates: start: 20190909
  2. OCRELIZUMAB [Suspect]
     Active Substance: OCRELIZUMAB
     Dosage: MOTHER DOSE WAS 300 MG
     Route: 064
     Dates: start: 20191007, end: 20191007
  3. OCRELIZUMAB [Suspect]
     Active Substance: OCRELIZUMAB
     Dosage: MOTHER DOSE WAS 600 MG
     Route: 064
     Dates: start: 20200407, end: 20200407
  4. DIPHTHERIA TOXOID NOS [Concomitant]
     Active Substance: CORYNEBACTERIUM DIPHTHERIAE TOXOID ANTIGEN (FORMALDEHYDE INACTIVATED)
  5. HEPATITIS B VIRUS VACCINE [Concomitant]
     Active Substance: HEPATITIS B VIRUS VACCINE

REACTIONS (5)
  - Congenital arterial malformation [Recovered/Resolved]
  - Foetal exposure during pregnancy [Unknown]
  - Atrial septal defect [Not Recovered/Not Resolved]
  - Aortic disorder [Not Recovered/Not Resolved]
  - Premature baby [Unknown]

NARRATIVE: CASE EVENT DATE: 20200915
